FAERS Safety Report 4596265-6 (Version None)
Quarter: 2005Q1

REPORT INFORMATION
  Report Type: 
  Country: None (occurrence: None)
  Receive Date: 20050302
  Receipt Date: 20050221
  Transmission Date: 20050727
  Serious: Yes (Other)
  Sender: FDA-Public Use
  Company Number: US-KINGPHARMUSA00001-K200500259

PATIENT
  Age: 41 Year
  Sex: Female
  Weight: 50 kg

DRUGS (5)
  1. LEVOXYL [Suspect]
     Indication: HYPOTHYROIDISM
     Dosage: 175 MCG, QAM
     Route: 048
     Dates: start: 19950101, end: 20040801
  2. LEVOXYL [Suspect]
     Dosage: 150 MCG, QD
     Route: 048
     Dates: start: 20040801, end: 20050217
  3. LEVOXYL [Suspect]
     Dosage: 162 MCG, QD
     Route: 048
     Dates: start: 20050218
  4. BIRTH CONTROL [Concomitant]
     Indication: PROPHYLAXIS
     Dosage: 1 TABLET QD
     Route: 048
     Dates: start: 19860101
  5. MULTIVITAMIN ^LAPPE^ [Concomitant]
     Indication: VITAMIN SUPPLEMENTATION
     Dosage: 1 TABLET QAM
     Route: 048

REACTIONS (6)
  - DRY SKIN [None]
  - FEELING ABNORMAL [None]
  - MUSCLE SPASMS [None]
  - PHARMACEUTICAL PRODUCT COMPLAINT [None]
  - THYROXINE FREE INCREASED [None]
  - WEIGHT INCREASED [None]
